FAERS Safety Report 5244952-9 (Version None)
Quarter: 2007Q1

REPORT INFORMATION
  Report Type: 
  Country: None (occurrence: None)
  Receive Date: 20070223
  Receipt Date: 20070220
  Transmission Date: 20070707
  Serious: Yes (Other)
  Sender: FDA-Public Use
  Company Number: CZ-JNJFOC-20070204107

PATIENT
  Sex: Female

DRUGS (1)
  1. REMICADE [Suspect]
     Indication: COLITIS ULCERATIVE
     Dosage: 2 INFUSIONS
     Route: 042

REACTIONS (3)
  - HYPOTHERMIA [None]
  - INFUSION RELATED REACTION [None]
  - VERTIGO [None]
